FAERS Safety Report 10426133 (Version 1)
Quarter: 2014Q1

REPORT INFORMATION
  Report Type: Spontaneous
  Country: US (occurrence: None)
  Receive Date: 20130305
  Receipt Date: 20130305
  Transmission Date: 20141002
  Serious: Yes (Other)
  Sender: FDA-Public Use
  Company Number: 163-21880-12043092

PATIENT
  Age: 84 Year
  Sex: Male
  Weight: 88.5 kg

DRUGS (1)
  1. REVLIMID (LENALIDOMIDE) (10 MILLIGRAM, CAPSULES) [Suspect]
     Indication: PLASMA CELL MYELOMA
     Route: 048
     Dates: start: 20120209

REACTIONS (8)
  - Full blood count decreased [None]
  - Rash pruritic [None]
  - Night sweats [None]
  - Local swelling [None]
  - Constipation [None]
  - Cough [None]
  - Red blood cell count decreased [None]
  - Malaise [None]
